FAERS Safety Report 9240842 (Version 1)
Quarter: 2013Q1

REPORT INFORMATION
  Report Type: Spontaneous
  Country: US (occurrence: None)
  Receive Date: 20121120
  Receipt Date: 20121120
  Transmission Date: 20140127
  Serious: No
  Sender: FDA-Public Use
  Company Number: 1000037477

PATIENT
  Age: 66 Year
  Sex: Male

DRUGS (9)
  1. VIIBRYD [Suspect]
     Indication: DEPRESSION
     Route: 048
     Dates: start: 201203
  2. RITALIN(METHYLPHENIDATE HYDROCHLORIDE)(METHYLPHENIDAT HYDROCHLORIDE) [Concomitant]
  3. VALIUM(DIAZEPAM)(DIAZEPAM) [Concomitant]
  4. LIPITOR(ATORVASTATIN CALCIUM)(ATORVASTATIN CALCIUM) [Concomitant]
  5. LISINOPRIL(LISINOPRIL)(LISINOPRIL) [Concomitant]
  6. CENTRUM SILVER MULTIVITAMINS(CENTRUM SILVER MULTIVITAMINS)(CENTRUM SILVER MULTIVITAMINS) [Concomitant]
  7. VITAMIN C(VITAMIN C)(VITAMIN C) [Concomitant]
  8. VITAMIN D(VITAMIN D)(VITAMIN D) [Concomitant]
  9. FISH OIL(FISH OIL)(FISH OIL) [Concomitant]

REACTIONS (2)
  - Diarrhoea [None]
  - Abdominal pain upper [None]
